FAERS Safety Report 4801421-5 (Version None)
Quarter: 2005Q4

REPORT INFORMATION
  Report Type: 
  Country: None (occurrence: None)
  Receive Date: 20051011
  Receipt Date: 20050926
  Transmission Date: 20060501
  Serious: Yes (Other)
  Sender: FDA-Public Use
  Company Number: 217875

PATIENT
  Age: 55 Year
  Sex: Male
  Weight: 77.1 kg

DRUGS (4)
  1. AVASTIN [Suspect]
     Indication: COLORECTAL CANCER METASTATIC
     Dosage: 386 MG, Q2W, INTRAVENOUS
     Route: 042
     Dates: start: 20050603
  2. FLUOROURACIL [Concomitant]
  3. LEUCOVORIN CALCIUM [Concomitant]
  4. OXALIPLATIN (OXALIPLATIN) [Concomitant]

REACTIONS (3)
  - HYPOPERFUSION [None]
  - LIVER DISORDER [None]
  - NEUROPATHY PERIPHERAL [None]
